FAERS Safety Report 7364481-6 (Version None)
Quarter: 2011Q1

REPORT INFORMATION
  Report Type: 
  Country: None (occurrence: None)
  Receive Date: 20110321
  Receipt Date: 20110309
  Transmission Date: 20110831
  Serious: Yes (Death, Hospitalization, Other)
  Sender: FDA-Public Use
  Company Number: GB-BRISTOL-MYERS SQUIBB COMPANY-15570666

PATIENT
  Age: 63 Year
  Sex: Female

DRUGS (1)
  1. METFORMIN HCL [Suspect]

REACTIONS (5)
  - LACTIC ACIDOSIS [None]
  - RENAL FAILURE ACUTE [None]
  - CARDIAC ARREST [None]
  - DIARRHOEA [None]
  - VOMITING [None]
